FAERS Safety Report 9108578 (Version 1)
Quarter: 2013Q1

REPORT INFORMATION
  Report Type: Spontaneous
  Country: ES (occurrence: ES)
  Receive Date: 20130222
  Receipt Date: 20130222
  Transmission Date: 20140127
  Serious: Yes (Hospitalization, Other)
  Sender: FDA-Public Use
  Company Number: ES-009507513-1302ESP009642

PATIENT
  Age: 61 Year
  Sex: Male
  Weight: 70 kg

DRUGS (3)
  1. REBETOL [Suspect]
     Indication: HEPATITIS C
     Dosage: 1000 MG/DIA
     Route: 065
     Dates: start: 20120625, end: 20120828
  2. PEGASYS [Suspect]
     Indication: HEPATITIS C
     Dosage: 180 MICROGRAMS/WEEK
     Route: 065
     Dates: start: 20120625, end: 20120828
  3. TELAPREVIR [Suspect]
     Indication: HEPATITIS C
     Dosage: 1050 MG/12 HOURS
     Route: 065
     Dates: start: 20120625, end: 20120828

REACTIONS (1)
  - Persecutory delusion [Recovered/Resolved]
